FAERS Safety Report 4810599-9 (Version None)
Quarter: 2005Q4

REPORT INFORMATION
  Report Type: 
  Country: None (occurrence: None)
  Receive Date: 20051026
  Receipt Date: 20050829
  Transmission Date: 20060501
  Serious: Yes (Death, Hospitalization)
  Sender: FDA-Public Use
  Company Number: US-AMGEN-US148380

PATIENT
  Sex: Female

DRUGS (7)
  1. ENBREL [Suspect]
     Indication: RHEUMATOID ARTHRITIS
     Route: 058
     Dates: start: 20030301
  2. CORTICOSTEROIDS [Suspect]
     Dates: start: 20050101
  3. METHOTREXATE [Suspect]
     Route: 048
     Dates: start: 20020501, end: 20050701
  4. LODINE XL [Concomitant]
     Route: 048
     Dates: start: 20050720, end: 20050801
  5. BISOPROLOL [Concomitant]
     Dates: start: 20010101, end: 20050801
  6. COZAAR [Concomitant]
     Dates: start: 20050501, end: 20050801
  7. ZOLOFT [Concomitant]
     Route: 048
     Dates: start: 19980101, end: 20050801

REACTIONS (5)
  - EMBOLISM [None]
  - MULTI-ORGAN FAILURE [None]
  - PNEUMONIA [None]
  - SEPTIC SHOCK [None]
  - THERAPY NON-RESPONDER [None]
